FAERS Safety Report 23386364 (Version 1)
Quarter: 2024Q1

REPORT INFORMATION
  Report Type: Report from Study
  Country: CO (occurrence: CO)
  Receive Date: 20240110
  Receipt Date: 20240110
  Transmission Date: 20240410
  Serious: Yes (Other)
  Sender: FDA-Public Use
  Company Number: CO-BAYER-2023A181596

PATIENT
  Sex: Female

DRUGS (10)
  1. EYLEA [Suspect]
     Active Substance: AFLIBERCEPT
     Indication: Diabetic retinal oedema
     Dosage: 2 MG, ONCE BOTH EYES, SOLUTION FOR INJECTION, 40MG/ML
     Route: 031
     Dates: start: 20210202, end: 20210202
  2. EYLEA [Suspect]
     Active Substance: AFLIBERCEPT
     Dosage: 2 MG, ONCE BOTH EYES, SOLUTION FOR INJECTION, 40MG/ML
     Route: 031
     Dates: start: 20210722, end: 20210722
  3. EYLEA [Suspect]
     Active Substance: AFLIBERCEPT
     Dosage: 2 MG, ONCE BOTH EYES, SOLUTION FOR INJECTION, 40MG/ML
     Route: 031
     Dates: start: 20210810, end: 20210810
  4. EYLEA [Suspect]
     Active Substance: AFLIBERCEPT
     Dosage: 2 MG, ONCE BOTH EYES, SOLUTION FOR INJECTION, 40MG/ML
     Route: 031
     Dates: start: 20210923, end: 20210923
  5. EYLEA [Suspect]
     Active Substance: AFLIBERCEPT
     Dosage: 2 MG, ONCE BOTH EYES, SOLUTION FOR INJECTION, 40MG/ML
     Route: 031
     Dates: start: 20211021, end: 20211021
  6. EYLEA [Suspect]
     Active Substance: AFLIBERCEPT
     Dosage: 2 MG, ONCE BOTH EYES, SOLUTION FOR INJECTION, 40MG/ML
     Route: 031
     Dates: start: 20220120, end: 20220120
  7. EYLEA [Suspect]
     Active Substance: AFLIBERCEPT
     Dosage: 2 MG, ONCE RIGHT EYE, SOLUTION FOR INJECTION, 40MG/ML
     Route: 031
     Dates: start: 20220317, end: 20220317
  8. EYLEA [Suspect]
     Active Substance: AFLIBERCEPT
     Dosage: 2 MG, ONCE RIGHT EYE, SOLUTION FOR INJECTION, 40MG/ML
     Route: 031
     Dates: start: 20220616, end: 20220616
  9. EYLEA [Suspect]
     Active Substance: AFLIBERCEPT
     Dosage: 2 MG, ONCE RIGHT EYE, SOLUTION FOR INJECTION, 40MG/ML
     Route: 031
     Dates: start: 20221117, end: 20221117
  10. EYLEA [Suspect]
     Active Substance: AFLIBERCEPT
     Dosage: 2 MG, ONCE RIGHT EYE, SOLUTION FOR INJECTION, 40MG/ML
     Route: 031
     Dates: start: 20231214

REACTIONS (6)
  - Blindness unilateral [Unknown]
  - Blindness [Recovering/Resolving]
  - Blindness unilateral [Recovering/Resolving]
  - Eye pain [Not Recovered/Not Resolved]
  - Inappropriate schedule of product administration [Not Recovered/Not Resolved]
  - Injection site discomfort [Not Recovered/Not Resolved]

NARRATIVE: CASE EVENT DATE: 20231214
